FAERS Safety Report 25572638 (Version 2)
Quarter: 2025Q3

REPORT INFORMATION
  Report Type: Spontaneous
  Country: TR (occurrence: TR)
  Receive Date: 20250717
  Receipt Date: 20250723
  Transmission Date: 20251021
  Serious: Yes (Life-Threatening, Other)
  Sender: PFIZER
  Company Number: TR-PFIZER INC-PV202500084167

PATIENT
  Age: 58 Year
  Sex: Male

DRUGS (11)
  1. RITUXIMAB [Suspect]
     Active Substance: RITUXIMAB
     Indication: Central nervous system lymphoma
     Dosage: 375 MG/M2, DAILY (FIRST CYCLE)
     Dates: start: 20240902, end: 202409
  2. METHOTREXATE [Suspect]
     Active Substance: METHOTREXATE
     Indication: Central nervous system lymphoma
     Dosage: 3000 MG/M2, DAILY (FIRST CYCLE)
     Dates: start: 20240902, end: 202409
  3. METHOTREXATE [Suspect]
     Active Substance: METHOTREXATE
     Route: 037
     Dates: start: 20240930, end: 20241003
  4. CYTARABINE [Suspect]
     Active Substance: CYTARABINE
     Indication: Central nervous system lymphoma
     Dosage: 1000 MG/M2, DAILY (FIRST CYCLE)
     Dates: start: 20240902, end: 202409
  5. CYTARABINE [Suspect]
     Active Substance: CYTARABINE
     Route: 037
     Dates: start: 20240930, end: 20241003
  6. FOLIC ACID [Concomitant]
     Active Substance: FOLIC ACID
     Dates: start: 20240903
  7. MICAFUNGIN [Concomitant]
     Active Substance: MICAFUNGIN SODIUM
     Indication: Evidence based treatment
     Dates: start: 202410
  8. FILGRASTIM [Concomitant]
     Active Substance: FILGRASTIM
     Indication: Neutropenia
     Dates: start: 202410
  9. DAPTOMYCIN [Concomitant]
     Active Substance: DAPTOMYCIN
     Indication: Evidence based treatment
     Dates: start: 202410
  10. CYCLOSPORINE [Concomitant]
     Active Substance: CYCLOSPORINE
     Indication: Evidence based treatment
     Dates: start: 202410
  11. TACROLIMUS [Concomitant]
     Active Substance: TACROLIMUS
     Indication: Evidence based treatment
     Dates: start: 202410

REACTIONS (4)
  - Stevens-Johnson syndrome [Unknown]
  - Toxic epidermal necrolysis [Unknown]
  - Acute kidney injury [Unknown]
  - Neutropenia [Not Recovered/Not Resolved]

NARRATIVE: CASE EVENT DATE: 20240101
